FAERS Safety Report 12916768 (Version 1)
Quarter: 2016Q4

REPORT INFORMATION
  Report Type: Report from Study
  Country: GB (occurrence: GB)
  Receive Date: 20161107
  Receipt Date: 20161107
  Transmission Date: 20170207
  Serious: Yes (Other)
  Sender: FDA-Public Use
  Company Number: GB-ROCHE-1847067

PATIENT

DRUGS (2)
  1. OXALIPLATIN. [Suspect]
     Active Substance: OXALIPLATIN
     Indication: RECTAL CANCER
     Dosage: 2-H INTRAVENOUS INFUSION (130 MG/M2 DAYS 1 AND 29)
     Route: 042
  2. CAPECITABINE. [Suspect]
     Active Substance: CAPECITABINE
     Indication: RECTAL CANCER
     Dosage: (500-825 MG/M2 TWICE DAILY, 7 DAYS/WEEK),
     Route: 048

REACTIONS (6)
  - Lethargy [Unknown]
  - Radiation skin injury [Unknown]
  - Neuropathy peripheral [Unknown]
  - Proctalgia [Unknown]
  - Abdominal pain [Unknown]
  - Diarrhoea [Unknown]
